FAERS Safety Report 6679521-7 (Version None)
Quarter: 2010Q2

REPORT INFORMATION
  Report Type: 
  Country: None (occurrence: None)
  Receive Date: 20100413
  Receipt Date: 20100331
  Transmission Date: 20101027
  Serious: Yes (Other)
  Sender: FDA-Public Use
  Company Number: PHHY2010US08651

PATIENT
  Sex: Male

DRUGS (7)
  1. ZOMETA [Suspect]
     Indication: PROSTATE CANCER
     Dosage: 4 MG, UNK
     Dates: start: 20090826
  2. LUPRON [Suspect]
  3. LEUPROLIDE ACETATE [Suspect]
     Dosage: 7.5 MG, UNK
     Dates: start: 20080328
  4. LEUPROLIDE ACETATE [Suspect]
     Dosage: UNK
     Dates: start: 20090407
  5. LEUPROLIDE ACETATE [Suspect]
     Dosage: UNK
     Dates: start: 20090826
  6. ANTINEOPLASTIC AGENTS [Concomitant]
     Dosage: UNK
     Dates: start: 20090407
  7. ANTINEOPLASTIC AGENTS [Concomitant]
     Dosage: UNK
     Dates: start: 20090826

REACTIONS (9)
  - ACTIVITIES OF DAILY LIVING IMPAIRED [None]
  - ARTHRITIS [None]
  - ASTHENIA [None]
  - BONE PAIN [None]
  - FINGER DEFORMITY [None]
  - HOT FLUSH [None]
  - JOINT SWELLING [None]
  - MYALGIA [None]
  - PAIN IN EXTREMITY [None]
